FAERS Safety Report 13011949 (Version 3)
Quarter: 2017Q1

REPORT INFORMATION
  Report Type: Report from Study
  Country: JP (occurrence: JP)
  Receive Date: 20161209
  Receipt Date: 20170314
  Transmission Date: 20170428
  Serious: Yes (Hospitalization, Other)
  Sender: FDA-Public Use
  Company Number: JP-AMGEN-JPNNI2016173902

PATIENT
  Age: 13 Year
  Sex: Male
  Weight: 36 kg

DRUGS (44)
  1. DARBEPOETIN ALFA [Suspect]
     Active Substance: DARBEPOETIN ALFA
     Dosage: 30 MUG, QD
     Route: 042
     Dates: start: 20150325
  2. DARBEPOETIN ALFA [Suspect]
     Active Substance: DARBEPOETIN ALFA
     Dosage: 60 MUG, QD
     Route: 042
     Dates: start: 20160219
  3. KAYEXALATE [Concomitant]
     Active Substance: SODIUM POLYSTYRENE SULFONATE
     Indication: RENAL APLASIA
  4. ULTIVA [Concomitant]
     Active Substance: REMIFENTANIL HYDROCHLORIDE
     Indication: RENAL APLASIA
  5. ACELIO [Concomitant]
     Active Substance: ACETAMINOPHEN
     Indication: RENAL APLASIA
     Dosage: UNK
     Route: 042
  6. OLIVE OIL [Concomitant]
     Active Substance: OLIVE OIL
     Indication: RENAL APLASIA
  7. ASVERIN (TIPEPIDINE HIBENZATE) [Concomitant]
     Active Substance: TIPEPIDINE HIBENZATE
     Dosage: UNK
     Route: 048
  8. WARKMIN [Concomitant]
     Active Substance: ALFACALCIDOL
     Indication: HYPERPARATHYROIDISM SECONDARY
     Dosage: UNK
     Route: 048
  9. DARBEPOETIN ALFA [Suspect]
     Active Substance: DARBEPOETIN ALFA
     Indication: RENAL APLASIA
     Dosage: 30 MUG, QD
     Route: 042
     Dates: start: 20150223
  10. DARBEPOETIN ALFA [Suspect]
     Active Substance: DARBEPOETIN ALFA
     Dosage: 60 MUG, QD
     Route: 042
     Dates: start: 20151030
  11. ALFAROL [Concomitant]
     Active Substance: ALFACALCIDOL
     Indication: HYPERPARATHYROIDISM SECONDARY
     Dosage: UNK
     Route: 048
  12. PRECIPITATED CALCIUM CARBONATE [Concomitant]
     Active Substance: CALCIUM CARBONATE
     Indication: HYPERPARATHYROIDISM SECONDARY
     Dosage: UNK
     Route: 048
  13. KREMEZIN [Concomitant]
     Active Substance: ACTIVATED CHARCOAL
     Indication: AZOTAEMIA
     Dosage: UNK
     Route: 048
  14. FENTANYL. [Concomitant]
     Active Substance: FENTANYL
     Indication: RENAL APLASIA
  15. OLIVE OIL [Concomitant]
     Active Substance: OLIVE OIL
     Indication: RENAL APLASIA
     Dosage: UNK
     Route: 061
  16. BIMMUGEN [Concomitant]
     Dosage: UNK
     Route: 065
  17. MEARUBIK [Concomitant]
     Dosage: UNK
     Route: 058
  18. DARBEPOETIN ALFA [Suspect]
     Active Substance: DARBEPOETIN ALFA
     Dosage: 60 MUG, QD
     Route: 042
     Dates: start: 20151224
  19. ZYLORIC [Concomitant]
     Active Substance: ALLOPURINOL
     Indication: HYPERURICAEMIA
     Dosage: UNK
     Route: 048
  20. KAYEXALATE [Concomitant]
     Active Substance: SODIUM POLYSTYRENE SULFONATE
     Indication: RENAL APLASIA
     Dosage: UNK
     Route: 048
  21. FENTANYL. [Concomitant]
     Active Substance: FENTANYL
     Indication: RENAL APLASIA
     Dosage: UNK
     Route: 042
  22. MEYLON [Concomitant]
     Active Substance: SODIUM BICARBONATE
     Indication: RENAL APLASIA
  23. HIRUDOID [Concomitant]
     Active Substance: GLYCOSAMINOGLYCANS
     Dosage: UNK
     Route: 061
  24. DARBEPOETIN ALFA [Suspect]
     Active Substance: DARBEPOETIN ALFA
     Dosage: 40 MUG, QD
     Route: 042
     Dates: start: 20150414
  25. DARBEPOETIN ALFA [Suspect]
     Active Substance: DARBEPOETIN ALFA
     Dosage: 40 MUG, QD
     Route: 042
     Dates: start: 20150724
  26. DARBEPOETIN ALFA [Suspect]
     Active Substance: DARBEPOETIN ALFA
     Dosage: 40 MUG, QD
     Route: 042
     Dates: start: 20150925
  27. KETOPROFEN. [Suspect]
     Active Substance: KETOPROFEN
     Indication: PRODUCT USED FOR UNKNOWN INDICATION
     Dosage: UNK
     Route: 061
  28. KREMEZIN [Concomitant]
     Active Substance: ACTIVATED CHARCOAL
     Indication: AZOTAEMIA
  29. STERICLON [Concomitant]
     Active Substance: CHLORHEXIDINE GLUCONATE
     Indication: RENAL APLASIA
  30. MUCODYNE [Concomitant]
     Active Substance: CARBOCYSTEINE
  31. CEFAZOLIN NA [Concomitant]
     Indication: RENAL APLASIA
  32. ACELIO [Concomitant]
     Active Substance: ACETAMINOPHEN
     Indication: RENAL APLASIA
  33. FREEZE-DRIED LIVE ATTENUATED MEASLES AND RUBE [Concomitant]
     Dosage: UNK
     Route: 058
  34. CALONAL [Concomitant]
     Active Substance: ACETAMINOPHEN
     Dosage: UNK
     Route: 048
  35. DARBEPOETIN ALFA [Suspect]
     Active Substance: DARBEPOETIN ALFA
     Dosage: 60 MUG, QD
     Route: 042
     Dates: start: 20160119
  36. MEYLON [Concomitant]
     Active Substance: SODIUM BICARBONATE
     Indication: RENAL APLASIA
     Dosage: UNK
     Route: 042
  37. L CARTIN FF [Concomitant]
     Active Substance: LEVOCARNITINE
     Indication: RENAL APLASIA
     Dosage: UNK
     Route: 048
  38. DARBEPOETIN ALFA [Suspect]
     Active Substance: DARBEPOETIN ALFA
     Dosage: 40 MUG, QD
     Route: 058
     Dates: start: 20150626
  39. STERICLON [Concomitant]
     Active Substance: CHLORHEXIDINE GLUCONATE
     Indication: RENAL APLASIA
     Dosage: UNK
     Route: 061
  40. LASIX [Concomitant]
     Active Substance: FUROSEMIDE
     Indication: RENAL APLASIA
  41. ULTIVA [Concomitant]
     Active Substance: REMIFENTANIL HYDROCHLORIDE
     Indication: RENAL APLASIA
     Dosage: UNK
     Route: 042
  42. ALESION [Concomitant]
     Active Substance: EPINASTINE HYDROCHLORIDE
     Dosage: UNK
     Route: 048
  43. LASIX [Concomitant]
     Active Substance: FUROSEMIDE
     Indication: RENAL APLASIA
     Dosage: UNK
     Route: 048
  44. CEFAZOLIN NA [Concomitant]
     Indication: RENAL APLASIA
     Dosage: UNK
     Route: 042

REACTIONS (8)
  - Back pain [Recovered/Resolved]
  - Cardiac failure [Recovered/Resolved]
  - Thyroid function test abnormal [Recovered/Resolved]
  - Urinary tract infection [Recovered/Resolved]
  - Device related infection [Recovered/Resolved]
  - Eczema [Not Recovered/Not Resolved]
  - C-reactive protein increased [Recovered/Resolved]
  - Constipation [Not Recovered/Not Resolved]

NARRATIVE: CASE EVENT DATE: 20150225
